FAERS Safety Report 5581531-8 (Version None)
Quarter: 2008Q1

REPORT INFORMATION
  Report Type: 
  Country: None (occurrence: None)
  Receive Date: 20080104
  Receipt Date: 20070406
  Transmission Date: 20080703
  Serious: Yes (Other)
  Sender: FDA-Public Use
  Company Number: US-ASTRAZENECA-2007UW25945

PATIENT
  Age: 10933 Day
  Weight: 106.8 kg

DRUGS (5)
  1. SEROQUEL [Suspect]
     Indication: MAJOR DEPRESSION
     Dosage: 50-600 MG
     Route: 048
     Dates: start: 20000501
  2. SEROQUEL [Suspect]
     Indication: INSOMNIA
     Dosage: 50-600 MG
     Route: 048
     Dates: start: 20000501
  3. ZYPREXA [Concomitant]
     Dates: start: 20010514, end: 20010811
  4. GEODON [Concomitant]
     Dates: start: 20060101
  5. DEPAKOTE [Concomitant]
     Dates: start: 20040101, end: 20060101

REACTIONS (3)
  - BLOOD CHOLESTEROL INCREASED [None]
  - DIABETES MELLITUS [None]
  - LEG AMPUTATION [None]
